FAERS Safety Report 15167659 (Version 1)
Quarter: 2018Q3

REPORT INFORMATION
  Report Type: Spontaneous
  Country: NP (occurrence: NP)
  Receive Date: 20180719
  Receipt Date: 20180719
  Transmission Date: 20181010
  Serious: Yes (Life-Threatening, Hospitalization, Other)
  Sender: FDA-Public Use
  Company Number: PHHY2018NP048704

PATIENT
  Age: 38 Year
  Sex: Female

DRUGS (1)
  1. PANTOPRAZOLE [Suspect]
     Active Substance: PANTOPRAZOLE
     Indication: DYSPEPSIA
     Dosage: 40 MG, UNK
     Route: 065

REACTIONS (9)
  - Periorbital oedema [Unknown]
  - Skin oedema [Unknown]
  - Vomiting [Unknown]
  - Dyspnoea [Recovering/Resolving]
  - Anaphylactic reaction [Recovered/Resolved]
  - Shock [Unknown]
  - Drug hypersensitivity [Recovered/Resolved]
  - Pruritus [Recovering/Resolving]
  - Nausea [Unknown]
